FAERS Safety Report 7469810-0 (Version None)
Quarter: 2011Q2

REPORT INFORMATION
  Report Type: 
  Country: None (occurrence: None)
  Receive Date: 20110510
  Receipt Date: 20110506
  Transmission Date: 20111010
  Serious: Yes (Death, Hospitalization)
  Sender: FDA-Public Use
  Company Number: CN-SANOFI-AVENTIS-2011SA027203

PATIENT
  Age: 82 Year
  Sex: Female

DRUGS (3)
  1. PRAVASTATIN [Concomitant]
     Indication: ACUTE CORONARY SYNDROME
     Route: 048
     Dates: start: 20100701
  2. ISOSORBIDE MONONITRATE [Concomitant]
     Indication: ACUTE CORONARY SYNDROME
     Route: 048
     Dates: start: 20100701
  3. CLOPIDOGREL BISULFATE [Suspect]
     Indication: ACUTE CORONARY SYNDROME
     Route: 048
     Dates: start: 20100701, end: 20100701

REACTIONS (5)
  - PANCYTOPENIA [None]
  - SEPTIC SHOCK [None]
  - PYREXIA [None]
  - HYPOTENSION [None]
  - DIARRHOEA [None]
